FAERS Safety Report 20162969 (Version 2)
Quarter: 2021Q4

REPORT INFORMATION
  Report Type: Spontaneous
  Country: FR (occurrence: FR)
  Receive Date: 20211209
  Receipt Date: 20211214
  Transmission Date: 20220304
  Serious: Yes (Hospitalization)
  Sender: FDA-Public Use
  Company Number: FR-SUN PHARMACEUTICAL INDUSTRIES LTD-2021RR-319480

PATIENT
  Age: 35 Year
  Sex: Female

DRUGS (4)
  1. MORPHINE [Suspect]
     Active Substance: MORPHINE
     Indication: Pain
     Dosage: 4 MILLIGRAM, DAILY
     Route: 058
     Dates: end: 20210921
  2. MORPHINE [Suspect]
     Active Substance: MORPHINE
     Dosage: 40 MILLIGRAM, DAILY
     Route: 042
     Dates: end: 20210921
  3. FENTANYL [Suspect]
     Active Substance: FENTANYL
     Indication: Pain
     Dosage: UNK
     Route: 062
     Dates: end: 20210921
  4. BUPRENORPHINE [Suspect]
     Active Substance: BUPRENORPHINE
     Indication: Pain
     Dosage: 8 MILLIGRAM, DAILY
     Route: 060
     Dates: end: 20210921

REACTIONS (1)
  - Drug dependence, antepartum [Recovering/Resolving]
